FAERS Safety Report 9180112 (Version 1)
Quarter: 2012Q4

REPORT INFORMATION
  Report Type: 
  Country: US (occurrence: US)
  Receive Date: 20121029
  Receipt Date: 20121029
  Transmission Date: 20130627
  Serious: Yes (Hospitalization)
  Sender: FDA-Public Use
  Company Number: US-PFIZER INC-2012263897

PATIENT
  Age: 15 Year
  Sex: Female
  Weight: 37 kg

DRUGS (4)
  1. TOBRAMYCIN SULFATE [Suspect]
     Indication: LUNG INFECTION PSEUDOMONAL
     Dosage: 80 mg
     Route: 042
  2. CEFOPERAZONE SODIUM [Suspect]
     Indication: LUNG INFECTION PSEUDOMONAL
     Dosage: UNK
  3. TICARCILLIN [Suspect]
     Indication: LUNG INFECTION PSEUDOMONAL
     Dosage: UNK
     Route: 042
  4. GENTAMICIN [Suspect]
     Indication: LUNG INFECTION PSEUDOMONAL
     Dosage: UNK
     Route: 051

REACTIONS (4)
  - Urticaria [Recovering/Resolving]
  - Dyspnoea [Recovered/Resolved]
  - Laryngospasm [Recovered/Resolved]
  - Urticaria [Recovering/Resolving]
